FAERS Safety Report 15756502 (Version 1)
Quarter: 2018Q4

REPORT INFORMATION
  Report Type: Spontaneous
  Country: PR (occurrence: US)
  Receive Date: 20181224
  Receipt Date: 20181224
  Transmission Date: 20190205
  Serious: No
  Sender: FDA-Public Use
  Company Number: PR-GLAXOSMITHKLINE-US2018GSK228506

PATIENT
  Age: 46 Year
  Sex: Female

DRUGS (1)
  1. TRELEGY ELLIPTA [Suspect]
     Active Substance: FLUTICASONE FUROATE\UMECLIDINIUM BROMIDE\VILANTEROL TRIFENATATE
     Indication: ASTHMA
     Dosage: 100 MCG/62.5 MCG/25 MCG
     Dates: start: 201811

REACTIONS (3)
  - Inability to afford medication [Unknown]
  - Asthma [Unknown]
  - Product dose omission [Unknown]

NARRATIVE: CASE EVENT DATE: 20181214
